FAERS Safety Report 7849435-5 (Version None)
Quarter: 2011Q4

REPORT INFORMATION
  Report Type: 
  Country: None (occurrence: None)
  Receive Date: 20111024
  Receipt Date: 20111013
  Transmission Date: 20120403
  Serious: Yes (Other)
  Sender: FDA-Public Use
  Company Number: ADR-2011-11218

PATIENT
  Sex: Male

DRUGS (1)
  1. LIORESAL [Suspect]
     Indication: MUSCLE SPASTICITY
     Dosage: 1400 MCG. DAILY, INTRAT

REACTIONS (10)
  - RENAL CYST [None]
  - AORTIC ARTERIOSCLEROSIS [None]
  - HEADACHE [None]
  - MUSCLE SPASTICITY [None]
  - PAIN [None]
  - SPINAL OSTEOARTHRITIS [None]
  - DRUG INEFFECTIVE [None]
  - CONDITION AGGRAVATED [None]
  - MEDICAL DEVICE COMPLICATION [None]
  - SPONDYLOLISTHESIS [None]
